FAERS Safety Report 4751789-3 (Version None)
Quarter: 2005Q3

REPORT INFORMATION
  Report Type: 
  Country: None (occurrence: None)
  Receive Date: 20050818
  Receipt Date: 20030930
  Transmission Date: 20060218
  Serious: Yes (Life-Threatening)
  Sender: FDA-Public Use
  Company Number: 2003179956GB

PATIENT
  Age: 66 Year
  Sex: Male

DRUGS (3)
  1. CYCLOPHOSPHAMIDE [Suspect]
     Indication: VASCULITIS
     Dosage: 100 MG, QD
  2. SOLU-MEDROL [Suspect]
     Indication: VASCULITIS
     Dosage: 1 G, IV
     Route: 042
  3. DELTA-CORTEF [Suspect]
     Indication: VASCULITIS
     Dosage: 60 MG, QD; 4O MG, QD

REACTIONS (1)
  - PNEUMONITIS [None]
